FAERS Safety Report 8979426 (Version 1)
Quarter: 2012Q4

REPORT INFORMATION
  Report Type: 
  Country: JP (occurrence: JP)
  Receive Date: 20121221
  Receipt Date: 20121221
  Transmission Date: 20130627
  Serious: Yes (Hospitalization)
  Sender: FDA-Public Use
  Company Number: JP-MERCK-1212JPN006292

PATIENT
  Age: 65 Year
  Sex: Female
  Weight: 40 kg

DRUGS (12)
  1. RINDERON [Suspect]
     Indication: MALIGNANT GLIOMA
     Dosage: 1.5 mg, tid after the meal
     Route: 048
     Dates: start: 20090819
  2. BEVACIZUMAB [Suspect]
     Indication: MALIGNANT GLIOMA
     Dosage: 400 mg, one in 2 weeks
     Route: 042
     Dates: start: 20090807, end: 20090821
  3. BEVACIZUMAB [Suspect]
     Dosage: 400 mg, one in 2 weeks
     Route: 042
     Dates: start: 20091002
  4. EXCEGRAN [Concomitant]
     Dosage: 100 mg, tid (after the meal)
     Route: 048
     Dates: start: 20090508
  5. GASTER [Concomitant]
     Dosage: 10 mg, bid (after the supper the morning)
     Route: 048
     Dates: start: 20090316
  6. LIVALO [Concomitant]
     Dosage: 2 mg, qd (after the supper)
     Route: 048
  7. EBASTEL [Concomitant]
     Dosage: 10 mg, qd (after the breakfast)
     Route: 048
  8. MAGNESIUM OXIDE [Concomitant]
     Dosage: 0.5 g, tid (after the meal)
     Route: 048
     Dates: start: 20090525
  9. ALEVIATIN [Concomitant]
     Dosage: 100 mg, bid (after the supper the morning)
     Route: 048
     Dates: start: 20090525
  10. ISOSORBIDE [Concomitant]
     Dosage: 30 ml, tid (after the meal)
     Route: 048
  11. ISOSORBIDE [Concomitant]
     Dosage: 45 ml, bid (after the supper the morning)
     Route: 048
     Dates: start: 20090819
  12. SEROQUEL [Concomitant]
     Dosage: 25 mg, Unknown (a dose)
     Route: 048
     Dates: start: 20090512

REACTIONS (1)
  - Deep vein thrombosis [Recovered/Resolved]
